FAERS Safety Report 5881624-1 (Version None)
Quarter: 2008Q3

REPORT INFORMATION
  Report Type: 
  Country: None (occurrence: None)
  Receive Date: 20080912
  Receipt Date: 20080703
  Transmission Date: 20090109
  Serious: No
  Sender: FDA-Public Use
  Company Number: US-ABBOTT-08P-163-0461383-00

PATIENT
  Sex: Female
  Weight: 71.732 kg

DRUGS (9)
  1. HUMIRA [Suspect]
     Indication: RHEUMATOID ARTHRITIS
     Route: 050
     Dates: start: 20080101
  2. LEFLUNOMIDE [Concomitant]
     Indication: RHEUMATOID ARTHRITIS
     Route: 048
     Dates: start: 20060101
  3. ESOMEPRAZOLE MAGNESIUM [Concomitant]
     Indication: STOMACH DISCOMFORT
     Route: 048
     Dates: start: 20080101
  4. LORAZEPAM [Concomitant]
     Indication: INSOMNIA
     Route: 048
     Dates: start: 20080101
  5. CALCIUM-SANDOZ [Concomitant]
     Indication: OSTEOPOROSIS
     Route: 048
     Dates: start: 20070701
  6. IBANDRONATE SODIUM [Concomitant]
     Indication: OSTEOPOROSIS
     Route: 048
     Dates: start: 20070701
  7. ERGOCALCIFEROL [Concomitant]
     Indication: OSTEOPOROSIS
     Route: 048
     Dates: start: 20070701
  8. HYDROCODONE BITARTRATE [Concomitant]
     Indication: PAIN
     Dosage: 7.5/500 MILLIGRAM
     Route: 048
     Dates: start: 20080301
  9. METHOTREXATE [Concomitant]
     Indication: RHEUMATOID ARTHRITIS
     Dates: end: 20071201

REACTIONS (2)
  - ACCIDENTAL EXPOSURE [None]
  - CONTUSION [None]
